FAERS Safety Report 13079070 (Version 1)
Quarter: 2017Q1

REPORT INFORMATION
  Report Type: Spontaneous
  Country: US (occurrence: US)
  Receive Date: 20170102
  Receipt Date: 20170102
  Transmission Date: 20170428
  Serious: Yes (Other)
  Sender: FDA-Public Use
  Company Number: US-B.I. PHARMACEUTICALS,INC./RIDGEFIELD-2016-BI-087642

PATIENT
  Sex: Male

DRUGS (3)
  1. SPIRIVA [Suspect]
     Active Substance: TIOTROPIUM BROMIDE MONOHYDRATE
     Indication: CHRONIC OBSTRUCTIVE PULMONARY DISEASE
     Dosage: ADMINISTRATION CORRECT? YES
     Route: 055
     Dates: start: 2013
  2. WARFARIN [Concomitant]
     Active Substance: WARFARIN
     Indication: CARDIAC DISORDER
     Route: 048
  3. WARFARIN [Concomitant]
     Active Substance: WARFARIN
     Dosage: ONE TABLET THREE TIMES A WEEK;  FORM STRENGTH: 2.5 MG; FORMULATION: TABLET
     Route: 048

REACTIONS (9)
  - Breast cancer [Recovered/Resolved]
  - Dyspnoea [Not Recovered/Not Resolved]
  - Herpes zoster [Recovered/Resolved]
  - Head injury [Recovered/Resolved]
  - Screaming [Recovered/Resolved]
  - Restless legs syndrome [Not Recovered/Not Resolved]
  - Headache [Recovered/Resolved]
  - Knee deformity [Recovered/Resolved]
  - Dysstasia [Recovered/Resolved]

NARRATIVE: CASE EVENT DATE: 2013
